FAERS Safety Report 10188039 (Version 1)
Quarter: 2014Q2

REPORT INFORMATION
  Report Type: Spontaneous
  Country: US (occurrence: US)
  Receive Date: 20140522
  Receipt Date: 20140522
  Transmission Date: 20141212
  Serious: No
  Sender: FDA-Public Use
  Company Number: US-SA-2013SA097899

PATIENT
  Age: 56 Year
  Sex: Male

DRUGS (5)
  1. LANTUS SOLOSTAR [Suspect]
     Indication: TYPE 2 DIABETES MELLITUS
     Dosage: DOSE:20 UNIT(S)
     Route: 051
  2. LANTUS SOLOSTAR [Suspect]
     Indication: TYPE 2 DIABETES MELLITUS
     Dosage: DOSE:20 UNIT(S)
     Route: 051
  3. VICTOZA [Suspect]
     Dosage: TAKEN FROM- 2.5 YEARS
     Route: 065
  4. SOLOSTAR [Concomitant]
  5. SOLOSTAR [Concomitant]

REACTIONS (6)
  - Headache [Not Recovered/Not Resolved]
  - Drug ineffective [Unknown]
  - Blood glucose increased [Unknown]
  - Injection site rash [Unknown]
  - Injection site pruritus [Unknown]
  - Drug administration error [Unknown]
